FAERS Safety Report 9748684 (Version 1)
Quarter: 2013Q4

REPORT INFORMATION
  Report Type: Spontaneous
  Country: US (occurrence: US)
  Receive Date: 20131212
  Receipt Date: 20131212
  Transmission Date: 20140711
  Serious: No
  Sender: FDA-Public Use
  Company Number: US-B.I. PHARMACEUTICALS,INC./RIDGEFIELD-2013-BI-39402BP

PATIENT
  Sex: Female
  Weight: 59 kg

DRUGS (12)
  1. SPIRIVA [Suspect]
     Indication: ASTHMA
     Dosage: 18 MCG
     Route: 055
     Dates: start: 2012
  2. SINGULAIR [Concomitant]
     Indication: HYPERSENSITIVITY
     Dosage: UNK
     Route: 048
  3. METOPROLOL TARTRATE [Concomitant]
     Indication: HYPERTENSION
     Dosage: 50 MG
     Route: 048
  4. TIKOSYN [Concomitant]
     Indication: ATRIAL FIBRILLATION
     Route: 048
  5. BUTMETANIDE [Concomitant]
     Indication: LOCAL SWELLING
     Route: 048
  6. BUTMETANIDE [Concomitant]
     Indication: LOCAL SWELLING
  7. LOSARTIN [Concomitant]
     Indication: HYPERTENSION
     Dosage: 25 MG
     Route: 048
  8. VITAMINS [Concomitant]
  9. ZYRTEC [Concomitant]
     Indication: HYPERSENSITIVITY
     Dosage: UNK
     Route: 048
  10. PRADAXA [Concomitant]
     Indication: ATRIAL FIBRILLATION
     Dosage: 300 MG
     Route: 048
     Dates: start: 2012
  11. VENTOLIN HFA [Concomitant]
     Indication: ASTHMA
     Dosage: 4 PUF
     Route: 048
  12. Q VAR [Concomitant]
     Indication: ASTHMA
     Dosage: 4 PUF
     Route: 055

REACTIONS (1)
  - Off label use [Unknown]
